FAERS Safety Report 7708610-0 (Version None)
Quarter: 2011Q3

REPORT INFORMATION
  Report Type: 
  Country: None (occurrence: None)
  Receive Date: 20110819
  Receipt Date: 20110803
  Transmission Date: 20111222
  Serious: Yes (Death, Hospitalization, Other)
  Sender: FDA-Public Use
  Company Number: 2011MA001497

PATIENT
  Sex: Female

DRUGS (15)
  1. ASPIRIN [Concomitant]
  2. SYNTHROID [Concomitant]
  3. NEURONTIN [Concomitant]
  4. PROTONIX [Concomitant]
  5. GLYBURIDE [Concomitant]
  6. METOCLOPRAMIDE [Suspect]
     Indication: PRODUCT USED FOR UNKNOWN INDICATION
     Dosage: 10 MG, PO
     Route: 048
     Dates: start: 19960319, end: 20080701
  7. TRICOR [Concomitant]
  8. LIPITOR [Concomitant]
  9. DETROL [Concomitant]
  10. PLAVIX [Concomitant]
  11. COZAAR [Concomitant]
  12. ZANTAC [Concomitant]
  13. PHENERGAN HCL [Concomitant]
  14. LASIX [Concomitant]
  15. LOPRESSOR [Concomitant]

REACTIONS (13)
  - FALL [None]
  - HIP FRACTURE [None]
  - ECONOMIC PROBLEM [None]
  - GAIT DISTURBANCE [None]
  - MASTICATION DISORDER [None]
  - TARDIVE DYSKINESIA [None]
  - EMOTIONAL DISORDER [None]
  - SEPSIS [None]
  - DYSKINESIA [None]
  - NEUROPATHY PERIPHERAL [None]
  - EXTRAPYRAMIDAL DISORDER [None]
  - PERONEAL NERVE PALSY [None]
  - SCIATIC NERVE NEUROPATHY [None]
